FAERS Safety Report 10899792 (Version 1)
Quarter: 2015Q1

REPORT INFORMATION
  Report Type: Spontaneous
  Country: US (occurrence: US)
  Receive Date: 20150310
  Receipt Date: 20150310
  Transmission Date: 20150721
  Serious: No
  Sender: FDA-Public Use
  Company Number: US-GLAXOSMITHKLINE-US2014GSK053585

PATIENT
  Sex: Female

DRUGS (15)
  1. ZYRTEC [Suspect]
     Active Substance: CETIRIZINE HYDROCHLORIDE
     Indication: PNEUMONITIS
  2. PREDNISONE. [Suspect]
     Active Substance: PREDNISONE
     Indication: SPUTUM INCREASED
  3. PULMICORT TURBUHALER [Suspect]
     Active Substance: BUDESONIDE
     Indication: MULTIPLE ALLERGIES
     Dosage: 180 MG, 1D
  4. ALBUTEROL. [Suspect]
     Active Substance: ALBUTEROL
     Indication: MULTIPLE ALLERGIES
     Dosage: UNK
  5. ZYRTEC [Suspect]
     Active Substance: CETIRIZINE HYDROCHLORIDE
     Indication: MULTIPLE ALLERGIES
     Dosage: UNK
  6. ALBUTEROL. [Suspect]
     Active Substance: ALBUTEROL
     Indication: PNEUMONITIS
  7. PULMICORT TURBUHALER [Suspect]
     Active Substance: BUDESONIDE
     Indication: SPUTUM INCREASED
  8. FLONASE [Suspect]
     Active Substance: FLUTICASONE PROPIONATE
     Indication: SPUTUM INCREASED
  9. PREDNISONE. [Suspect]
     Active Substance: PREDNISONE
     Indication: MULTIPLE ALLERGIES
     Dosage: UNK
  10. PULMICORT TURBUHALER [Suspect]
     Active Substance: BUDESONIDE
     Indication: PNEUMONITIS
  11. FLONASE [Suspect]
     Active Substance: FLUTICASONE PROPIONATE
     Indication: MULTIPLE ALLERGIES
     Dosage: UNK
     Route: 045
  12. PREDNISONE. [Suspect]
     Active Substance: PREDNISONE
     Indication: PNEUMONITIS
  13. FLONASE [Suspect]
     Active Substance: FLUTICASONE PROPIONATE
     Indication: PNEUMONITIS
  14. ZYRTEC [Suspect]
     Active Substance: CETIRIZINE HYDROCHLORIDE
     Indication: SPUTUM INCREASED
  15. ALBUTEROL. [Suspect]
     Active Substance: ALBUTEROL
     Indication: SPUTUM INCREASED

REACTIONS (2)
  - Drug ineffective [Unknown]
  - Hypersensitivity [Unknown]
